FAERS Safety Report 25786107 (Version 1)
Quarter: 2025Q3

REPORT INFORMATION
  Report Type: Spontaneous
  Country: IN (occurrence: IN)
  Receive Date: 20250910
  Receipt Date: 20250910
  Transmission Date: 20251021
  Serious: Yes (Death, Other)
  Sender: AZURITY PHARMACEUTICALS
  Company Number: IN-AZURITY PHARMACEUTICALS, INC.-AZR202508-002689

PATIENT
  Age: 38 Year
  Sex: Female

DRUGS (1)
  1. METHOTREXATE [Suspect]
     Active Substance: METHOTREXATE
     Indication: Granulomatosis with polyangiitis
     Route: 065

REACTIONS (5)
  - Cavernous sinus thrombosis [Unknown]
  - Haemophagocytic lymphohistiocytosis [Unknown]
  - Pneumonia [Fatal]
  - Leukopenia [Unknown]
  - Hypertransaminasaemia [Unknown]
